FAERS Safety Report 6855183-0 (Version None)
Quarter: 2010Q3

REPORT INFORMATION
  Report Type: 
  Country: None (occurrence: None)
  Receive Date: 20100717
  Receipt Date: 20081125
  Transmission Date: 20110219
  Serious: Yes (Life-Threatening, Hospitalization, Other)
  Sender: FDA-Public Use
  Company Number: PFIZER INC-2007108427

PATIENT
  Age: 39 Year
  Sex: Male
  Weight: 77.098 kg

DRUGS (1)
  1. CHANTIX [Suspect]
     Indication: SMOKING CESSATION THERAPY
     Dosage: UNK
     Dates: start: 20070910, end: 20070912

REACTIONS (3)
  - HYPERSENSITIVITY [None]
  - RESPIRATORY DISORDER [None]
  - THROAT TIGHTNESS [None]
